FAERS Safety Report 25964139 (Version 1)
Quarter: 2025Q4

REPORT INFORMATION
  Report Type: Spontaneous
  Country: US (occurrence: None)
  Receive Date: 20251027
  Receipt Date: 20251027
  Transmission Date: 20260118
  Serious: Yes (Hospitalization)
  Sender: FDA-CTU
  Company Number: None

PATIENT
  Sex: Female

DRUGS (1)
  1. EPOPROSTENOL [Suspect]
     Active Substance: EPOPROSTENOL
     Indication: Pulmonary arterial hypertension
     Dosage: OTHER FREQUENCY : CONTINUOUSLY;?
     Route: 042
     Dates: start: 20250910

REACTIONS (3)
  - Headache [None]
  - Nausea [None]
  - Herpes zoster [None]
